FAERS Safety Report 8021004-6 (Version None)
Quarter: 2011Q4

REPORT INFORMATION
  Report Type: 
  Country: None (occurrence: None)
  Receive Date: 20111228
  Receipt Date: 20111215
  Transmission Date: 20120403
  Serious: Yes (Hospitalization)
  Sender: FDA-Public Use
  Company Number: 2011P1009424

PATIENT
  Age: 17 Year
  Sex: Female
  Weight: 40.8 kg

DRUGS (11)
  1. MUCODYNE DRY SYRUP 50% (L-CARBOCISTEINE) [Concomitant]
  2. BUPHENYL [Suspect]
     Indication: AMINO ACID METABOLISM DISORDER
     Dosage: 13500 MG;QD;PO 10000 MG;QD;PO
     Route: 048
     Dates: start: 20110922, end: 20111003
  3. BUPHENYL [Suspect]
     Indication: AMINO ACID METABOLISM DISORDER
     Dosage: 13500 MG;QD;PO 10000 MG;QD;PO
     Route: 048
     Dates: start: 20111004, end: 20111010
  4. AMIYU GRANULE (ESSENTIAL AMINO ACIDS FOR RENAL INSUFFICIENCY) [Concomitant]
  5. ALLELOCK TABLETS (OLOPATADINE HYDROCHLORIDE) [Concomitant]
  6. HOKUNALIN TAPE 2 MG (TULOBUTEROL) [Concomitant]
  7. SOLUNIM CREAM (FLUOCINONIDE) [Concomitant]
  8. PULSMARIN A DRY SYRUP FOR PEDIATRIC (AMBROXOL HYDROCHLORIDE) [Concomitant]
  9. SULFUR AND CAMPHOR LOTION (SULFUR AND CAMPHOR) [Concomitant]
  10. ASVERIN POWDER (TIPEPIDINE HIBENZATE) [Concomitant]
  11. CRAVIT OPHTHALMIC SOLUTION 0.5% (LEVOFLOXACIN HYDRATE) [Concomitant]

REACTIONS (12)
  - DIZZINESS [None]
  - VOMITING [None]
  - IRRITABILITY [None]
  - ALOPECIA [None]
  - PERSONALITY CHANGE [None]
  - GAIT DISTURBANCE [None]
  - SALIVARY HYPERSECRETION [None]
  - IMPULSIVE BEHAVIOUR [None]
  - STRESS [None]
  - HYPERAMMONAEMIA [None]
  - AGGRESSION [None]
  - ATAXIA [None]
